FAERS Safety Report 9730019 (Version 3)
Quarter: 2014Q1

REPORT INFORMATION
  Report Type: Spontaneous
  Country: DE (occurrence: DE)
  Receive Date: 20131204
  Receipt Date: 20140115
  Transmission Date: 20141002
  Serious: Yes (Disabling, Other)
  Sender: FDA-Public Use
  Company Number: DE-PFIZER INC-2013342483

PATIENT
  Age: 71 Year
  Sex: Female
  Weight: 60.5 kg

DRUGS (3)
  1. TREVILOR RETARD [Suspect]
     Indication: DEPRESSION
     Dosage: 150 MG, DAILY
     Dates: start: 201111
  2. TREVILOR RETARD [Suspect]
     Dosage: 112.5 MG, DAILY
  3. MIRTAZAPINE [Suspect]
     Indication: DEPRESSION
     Dosage: 30 MG, DAILY
     Route: 048
     Dates: start: 20111222

REACTIONS (13)
  - Glaucoma [Unknown]
  - Venous thrombosis [Not Recovered/Not Resolved]
  - Venous thrombosis [Not Recovered/Not Resolved]
  - Macular oedema [Unknown]
  - Bloody discharge [Unknown]
  - Haemorrhage [Unknown]
  - Cystoid macular oedema [Unknown]
  - Cataract [Unknown]
  - Myopia [Unknown]
  - Astigmatism [Unknown]
  - Presbyopia [Unknown]
  - Cataract [Unknown]
  - Eye disorder [Unknown]
